FAERS Safety Report 6425112-2 (Version None)
Quarter: 2009Q4

REPORT INFORMATION
  Report Type: 
  Country: None (occurrence: None)
  Receive Date: 20091102
  Receipt Date: 20091102
  Transmission Date: 20100525
  Serious: Yes (Other)
  Sender: FDA-Public Use
  Company Number: None

PATIENT
  Age: 25 Year
  Sex: Female
  Weight: 58.0604 kg

DRUGS (1)
  1. ZICAM [Suspect]

REACTIONS (2)
  - HYPOSMIA [None]
  - PAROSMIA [None]
